FAERS Safety Report 14474686 (Version 1)
Quarter: 2018Q1

REPORT INFORMATION
  Report Type: Report from Study
  Country: IN (occurrence: IN)
  Receive Date: 20180201
  Receipt Date: 20180201
  Transmission Date: 20180509
  Serious: Yes (Hospitalization)
  Sender: FDA-Public Use
  Company Number: PHHY2018IN014043

PATIENT
  Age: 32 Year
  Sex: Male
  Weight: 52 kg

DRUGS (4)
  1. CARDIVAS (CARVEDILOL) [Suspect]
     Active Substance: CARVEDILOL
     Indication: PRODUCT USED FOR UNKNOWN INDICATION
     Dosage: 125 MG, BID
     Route: 048
  2. EPTUS [Concomitant]
     Indication: PRODUCT USED FOR UNKNOWN INDICATION
     Dosage: 25 MG, QD
     Route: 048
  3. LASIX [Concomitant]
     Active Substance: FUROSEMIDE
     Indication: PRODUCT USED FOR UNKNOWN INDICATION
     Dosage: 40 MG, BID
     Route: 048
  4. VYMADA [Suspect]
     Active Substance: SACUBITRIL\VALSARTAN
     Indication: CARDIAC FAILURE
     Dosage: 100 MG, BID
     Route: 048
     Dates: start: 20170406, end: 20180108

REACTIONS (1)
  - Chest pain [Recovering/Resolving]

NARRATIVE: CASE EVENT DATE: 20180108
